FAERS Safety Report 19105510 (Version 1)
Quarter: 2021Q2

REPORT INFORMATION
  Report Type: Report from Study
  Country: US (occurrence: US)
  Receive Date: 20210407
  Receipt Date: 20210407
  Transmission Date: 20210717
  Serious: Yes (Death)
  Sender: FDA-Public Use
  Company Number: US-SEATTLE GENETICS-2021SGN00035

PATIENT
  Sex: Male

DRUGS (1)
  1. TUCATINIB [Suspect]
     Active Substance: TUCATINIB
     Indication: RECTAL CANCER
     Dosage: UNK

REACTIONS (4)
  - Product use in unapproved indication [Unknown]
  - Death [Fatal]
  - Fatigue [Unknown]
  - Metastasis [Unknown]
